FAERS Safety Report 10298103 (Version 1)
Quarter: 2014Q3

REPORT INFORMATION
  Report Type: Spontaneous
  Country: US (occurrence: US)
  Receive Date: 20140711
  Receipt Date: 20140711
  Transmission Date: 20150326
  Serious: No
  Sender: FDA-Public Use
  Company Number: US-GLAXOSMITHKLINE-A1046129A

PATIENT
  Sex: Female

DRUGS (2)
  1. ANTIDEPRESSANTS [Concomitant]
     Active Substance: UNSPECIFIED INGREDIENT
  2. FLOVENT [Suspect]
     Active Substance: FLUTICASONE PROPIONATE
     Indication: ASTHMA
     Dosage: 2PUFF TWICE PER DAY
     Route: 055
     Dates: start: 201304

REACTIONS (7)
  - Asthenia [Unknown]
  - Chest discomfort [Unknown]
  - Condition aggravated [Unknown]
  - Ill-defined disorder [Unknown]
  - Fatigue [Unknown]
  - Cough [Unknown]
  - Dysphonia [Unknown]
